FAERS Safety Report 18175009 (Version 1)
Quarter: 2020Q3

REPORT INFORMATION
  Report Type: Spontaneous
  Country: ES (occurrence: ES)
  Receive Date: 20200820
  Receipt Date: 20200820
  Transmission Date: 20201103
  Serious: Yes (Other)
  Sender: FDA-Public Use
  Company Number: ES-ACCORD-196407

PATIENT
  Age: 69 Year
  Sex: Female

DRUGS (4)
  1. PROLIA [Concomitant]
     Active Substance: DENOSUMAB
     Indication: OSTEOPOROSIS
     Dosage: 60 MG SOLUTION FOR INJECTION IN PRE?FILLED SYRINGE, 1 PRE?FILLED SYRINGE OF 1 ML
     Route: 058
     Dates: start: 20200131
  2. CALCIFEDIOL [Concomitant]
     Active Substance: CALCIFEDIOL
     Indication: OSTEOPOROSIS
     Dosage: 0.266 MG
     Route: 048
     Dates: start: 20200130
  3. CALCIUM CARBONATE/COLECALCIFEROL [Concomitant]
     Active Substance: CALCIUM CARBONATE\CHOLECALCIFEROL
     Indication: OSTEOPOROSIS
     Dosage: CALCIUM CARBONATE / CHOLECALCIFEROL 1250 MG (500 MG CA) / 1000 UI COMP?MASTIC C / 30
     Route: 048
     Dates: start: 20200131
  4. ATORVASTATIN/ATORVASTATIN CALCIUM [Suspect]
     Active Substance: ATORVASTATIN CALCIUM
     Indication: HYPERLIPIDAEMIA
     Dosage: 20 MG 28 TABLETS
     Route: 048
     Dates: start: 20200130, end: 20200703

REACTIONS (5)
  - Hypervitaminosis D [Unknown]
  - Pruritus [Unknown]
  - Hypocalcaemia [Unknown]
  - Cholestasis [Unknown]
  - Cell death [Unknown]

NARRATIVE: CASE EVENT DATE: 20200720
